FAERS Safety Report 7392509-6 (Version None)
Quarter: 2011Q2

REPORT INFORMATION
  Report Type: 
  Country: None (occurrence: None)
  Receive Date: 20110404
  Receipt Date: 20110324
  Transmission Date: 20111010
  Serious: Yes (Hospitalization)
  Sender: FDA-Public Use
  Company Number: US-ASTRAZENECA-2011SE16842

PATIENT
  Sex: Female

DRUGS (8)
  1. PLAVIX [Suspect]
     Route: 065
  2. HYDROCHLOROTHIAZIDE [Concomitant]
  3. LOTENSIN [Concomitant]
  4. COREG [Concomitant]
  5. VICTOZA [Concomitant]
  6. CRESTOR [Suspect]
     Indication: BLOOD CHOLESTEROL
     Dosage: 10 MG
     Route: 048
  7. CRESTOR [Suspect]
     Route: 048
     Dates: start: 20110301
  8. PRANDIN [Concomitant]

REACTIONS (2)
  - STENT PLACEMENT [None]
  - DRY MOUTH [None]
